FAERS Safety Report 23181704 (Version 1)
Quarter: 2023Q4

REPORT INFORMATION
  Report Type: Report from Study
  Country: US (occurrence: None)
  Receive Date: 20231114
  Receipt Date: 20231114
  Transmission Date: 20240109
  Serious: Yes (Death, Other)
  Sender: FDA-Public Use
  Company Number: 2023A256077

PATIENT
  Age: 30787 Day

DRUGS (1)
  1. FARXIGA [Suspect]
     Active Substance: DAPAGLIFLOZIN PROPANEDIOL
     Indication: Diabetes mellitus
     Route: 048

REACTIONS (4)
  - Cardiogenic shock [Fatal]
  - Septic shock [Fatal]
  - Dementia [Unknown]
  - Illness [Unknown]

NARRATIVE: CASE EVENT DATE: 20230823
